FAERS Safety Report 10605508 (Version 1)
Quarter: 2014Q4

REPORT INFORMATION
  Report Type: Report from Study
  Country: HU (occurrence: HU)
  Receive Date: 20141124
  Receipt Date: 20141124
  Transmission Date: 20150529
  Serious: Yes (Hospitalization)
  Sender: FDA-Public Use
  Company Number: HU-BRISTOL-MYERS SQUIBB COMPANY-21609219

PATIENT
  Age: 65 Year
  Sex: Female

DRUGS (16)
  1. PANTOPRAZOLE [Concomitant]
     Active Substance: PANTOPRAZOLE SODIUM
     Indication: GASTROOESOPHAGEAL REFLUX DISEASE
  2. CARDILOPIN [Concomitant]
     Indication: HYPERTENSION
  3. MONOPRIL [Concomitant]
     Active Substance: FOSINOPRIL SODIUM
     Indication: HYPERTENSION
  4. CLOPIDOGREL BISULFATE. [Concomitant]
     Active Substance: CLOPIDOGREL BISULFATE
     Indication: CEREBROVASCULAR ACCIDENT
  5. CHINOTAL [Concomitant]
     Active Substance: PENTOXIFYLLINE
     Indication: VARICOSE VEIN
  6. PLACEBO [Suspect]
     Active Substance: UNSPECIFIED INGREDIENT
     Indication: TYPE 2 DIABETES MELLITUS
     Dosage: RUN IN PHASE:07APR14-08MAY14.
     Dates: start: 20140509
  7. EZETROL [Concomitant]
     Active Substance: EZETIMIBE
     Indication: HYPERLIPIDAEMIA
  8. TENAXUM [Concomitant]
     Active Substance: RILMENIDINE
     Indication: HYPERTENSION
  9. L-THYROXINE [Concomitant]
     Active Substance: LEVOTHYROXINE
     Indication: HYPOTHYROIDISM
  10. NOVORAPID [Concomitant]
     Active Substance: INSULIN ASPART
     Indication: TYPE 2 DIABETES MELLITUS
  11. DUOPRIL [Concomitant]
     Indication: HYPERTENSION
  12. SIMVASTATIN. [Concomitant]
     Active Substance: SIMVASTATIN
  13. BLINDED: DAPAGLIFLOZIN [Suspect]
     Active Substance: DAPAGLIFLOZIN
     Indication: TYPE 2 DIABETES MELLITUS
     Dates: start: 20140509
  14. MERCKFORMIN [Concomitant]
     Active Substance: METFORMIN HYDROCHLORIDE
     Indication: TYPE 2 DIABETES MELLITUS
  15. CAVINTON [Concomitant]
     Active Substance: VINPOCETINE
     Indication: CEREBROVASCULAR ACCIDENT
  16. LANTUS [Concomitant]
     Active Substance: INSULIN GLARGINE
     Indication: TYPE 2 DIABETES MELLITUS

REACTIONS (1)
  - Bladder cancer [Recovered/Resolved]

NARRATIVE: CASE EVENT DATE: 20140923
